FAERS Safety Report 6937857-6 (Version None)
Quarter: 2010Q3

REPORT INFORMATION
  Report Type: 
  Country: None (occurrence: None)
  Receive Date: 20100824
  Receipt Date: 20100315
  Transmission Date: 20110219
  Serious: No
  Sender: FDA-Public Use
  Company Number: US-BIOGENIDEC-2010BI008930

PATIENT
  Age: 24 Year
  Sex: Female

DRUGS (1)
  1. TYSABRI [Suspect]
     Indication: MULTIPLE SCLEROSIS
     Route: 042
     Dates: start: 20091218

REACTIONS (12)
  - COUGH [None]
  - DIZZINESS [None]
  - DYSPHONIA [None]
  - EAR CONGESTION [None]
  - EAR DISCOMFORT [None]
  - FATIGUE [None]
  - MULTIPLE SCLEROSIS [None]
  - MULTIPLE SCLEROSIS RELAPSE [None]
  - MUSCLE TWITCHING [None]
  - NASOPHARYNGITIS [None]
  - ORAL FUNGAL INFECTION [None]
  - POLLAKIURIA [None]
